FAERS Safety Report 12841728 (Version 1)
Quarter: 2016Q4

REPORT INFORMATION
  Report Type: Not Available
  Country: US (occurrence: US)
  Receive Date: 20161012
  Receipt Date: 20161012
  Transmission Date: 20170207
  Serious: No
  Sender: FDA-Public Use
  Company Number: US-ECOLAB-2016-US-000792

PATIENT
  Sex: Female

DRUGS (1)
  1. SCRUB-STAT [Suspect]
     Active Substance: CHLORHEXIDINE GLUCONATE
     Dosage: 0.5 TO 0.75 TEASPOON
     Route: 048
     Dates: start: 20160223

REACTIONS (2)
  - Accidental exposure to product [Unknown]
  - Throat irritation [Not Recovered/Not Resolved]

NARRATIVE: CASE EVENT DATE: 20160223
